FAERS Safety Report 8013681-0 (Version None)
Quarter: 2011Q4

REPORT INFORMATION
  Report Type: 
  Country: None (occurrence: None)
  Receive Date: 20111229
  Receipt Date: 20111221
  Transmission Date: 20120403
  Serious: Yes (Hospitalization)
  Sender: FDA-Public Use
  Company Number: US-PFIZER INC-2011310659

PATIENT
  Age: 59 Year
  Sex: Male
  Weight: 79 kg

DRUGS (24)
  1. CELECOXIB [Suspect]
     Indication: NON-SMALL CELL LUNG CANCER
     Dosage: 2X/DAY
     Route: 048
     Dates: start: 20111109, end: 20111116
  2. CALCIUM WITH VITAMIN D [Concomitant]
     Dosage: 1 TABLET (500MG/200UNITS), DAILY
     Route: 048
  3. OMEPRAZOLE [Concomitant]
     Dosage: 40 MG, BID AC
     Route: 048
  4. OXYCODONE AND ACETAMINOPHEN [Concomitant]
     Dosage: 10/650MG TAB 2 TABLETS, Q4H PRN
     Route: 048
  5. SODIUM CHLORIDE [Concomitant]
     Dosage: SODIUM CHLORIDE 0.9% INJ IN SODIUM CHLORIDE 0.9% 1000 ML 100 ML/HR
     Route: 042
  6. BLINDED NO SUBJECT DRUG [Suspect]
     Dosage: 2X/DAY
     Dates: start: 20111204, end: 20111204
  7. SIMVASTATIN [Concomitant]
     Dosage: 40 MG, QHS
     Route: 048
  8. BLINDED PLACEBO [Suspect]
     Dosage: 2X/DAY
     Dates: start: 20111204, end: 20111204
  9. ACETYLSALICYLIC ACID [Concomitant]
     Dosage: 81 MG, DAILY
     Route: 048
  10. ATENOLOL [Concomitant]
     Dosage: 12.5 MG, DAILY
     Route: 048
  11. MORPHINE [Concomitant]
     Dosage: 15 MG, 2X/DAY
     Route: 048
  12. BLINDED PLACEBO [Suspect]
     Indication: NON-SMALL CELL LUNG CANCER
     Dosage: 2X/DAY
     Route: 048
     Dates: start: 20111109, end: 20111116
  13. OXYCODONE AND ACETAMINOPHEN [Concomitant]
     Dosage: 5/325MG TAB 1 TABLET, Q4H PRN
     Route: 048
  14. SERTRALINE [Concomitant]
     Dosage: 25 MG, DAILY
     Route: 048
  15. BLINDED NO SUBJECT DRUG [Suspect]
     Indication: NON-SMALL CELL LUNG CANCER
     Dosage: 2X/DAY
     Route: 048
     Dates: start: 20111109, end: 20111116
  16. CELECOXIB [Suspect]
     Dosage: 2X/DAY
     Dates: start: 20111204, end: 20111204
  17. CARBOPLATIN [Suspect]
     Indication: NON-SMALL CELL LUNG CANCER
     Dosage: AUC=5.5, CYCLIC
     Route: 042
     Dates: start: 20111101, end: 20111125
  18. DIPHENHYDRAMINE [Concomitant]
     Dosage: 50 MG, Q6H PRN
     Route: 048
  19. DOCUSATE SODIUM [Concomitant]
     Dosage: 100 MG, 2X/DAY
     Route: 048
  20. LOSARTAN [Concomitant]
     Dosage: 50 MG, ID
     Route: 048
  21. PROCHLORPERAZINE [Concomitant]
     Dosage: 10 MG, Q4HR PRN
     Route: 048
  22. GEMCITABINE HYDROCHLORIDE [Suspect]
     Indication: NON-SMALL CELL LUNG CANCER
     Dosage: 1000 MG/M2, CYCLIC ON DAYS 1 AND 8
     Route: 042
     Dates: start: 20111101, end: 20111202
  23. FLUNISOLIDE [Concomitant]
     Dosage: 2 SPRAYS, EN BID
     Route: 045
  24. MULTI-VITAMINS [Concomitant]
     Dosage: 1 TABLET, DAILY
     Route: 048

REACTIONS (2)
  - PYREXIA [None]
  - RASH MACULO-PAPULAR [None]
